FAERS Safety Report 8696619 (Version 2)
Quarter: 2013Q4

REPORT INFORMATION
  Report Type: Spontaneous
  Country: US (occurrence: US)
  Receive Date: 20120801
  Receipt Date: 20131107
  Transmission Date: 20140711
  Serious: Yes (Other)
  Sender: FDA-Public Use
  Company Number: US-BAYER-2012-074488

PATIENT
  Age: 30 Year
  Sex: Female

DRUGS (8)
  1. YASMIN [Suspect]
     Route: 048
  2. BROMOCRIPTINE [Concomitant]
     Route: 048
  3. OXYCODONE/APAP [Concomitant]
     Dosage: 5-325MG
     Route: 048
  4. IBUPROFEN [Concomitant]
     Route: 048
  5. FUROSEMIDE [Concomitant]
     Route: 048
  6. PHENTERMINE HYDROCHLORIDE [Concomitant]
     Route: 048
  7. HYDROCODONE [Concomitant]
     Route: 048
  8. ZOFRAN [Concomitant]
     Route: 048

REACTIONS (4)
  - Cholecystitis [None]
  - Injury [None]
  - Pain [None]
  - Emotional distress [None]
